FAERS Safety Report 8826787 (Version 1)
Quarter: 2012Q4

REPORT INFORMATION
  Report Type: 
  Country: RO (occurrence: RO)
  Receive Date: 20121005
  Receipt Date: 20121005
  Transmission Date: 20130627
  Serious: Yes (Hospitalization, Other)
  Sender: FDA-Public Use
  Company Number: RO-GLAXOSMITHKLINE-B0835574A

PATIENT
  Age: 9 Year
  Sex: Male

DRUGS (2)
  1. LAMICTAL [Suspect]
     Indication: EPILEPSY
     Route: 065
  2. DEPAKINE [Concomitant]
     Indication: EPILEPSY
     Route: 065

REACTIONS (25)
  - Stevens-Johnson syndrome [Recovered/Resolved]
  - Pyrexia [Unknown]
  - Rash maculo-papular [Unknown]
  - Erythema [Unknown]
  - Pain [Unknown]
  - Cough [Unknown]
  - Decreased appetite [Unknown]
  - Dysphagia [Unknown]
  - Conjunctivitis [Unknown]
  - Feeling hot [Unknown]
  - Chapped lips [Unknown]
  - Blister [Unknown]
  - Blister [Unknown]
  - Ulcer [Unknown]
  - Oral disorder [Unknown]
  - Trismus [Unknown]
  - Lymphadenopathy [Unknown]
  - Hypopnoea [Unknown]
  - Stomatitis [Unknown]
  - Pneumonia [Unknown]
  - Papule [Unknown]
  - Malaise [Unknown]
  - Headache [Unknown]
  - Anaemia [Unknown]
  - Hepatomegaly [Unknown]
